FAERS Safety Report 4290092-5 (Version None)
Quarter: 2004Q1

REPORT INFORMATION
  Report Type: 
  Country: None (occurrence: None)
  Receive Date: 20040210
  Receipt Date: 20040204
  Transmission Date: 20041129
  Serious: Yes (Other)
  Sender: FDA-Public Use
  Company Number: US-BRISTOL-MYERS SQUIBB COMPANY-12496261

PATIENT
  Age: 82 Year
  Sex: Male

DRUGS (3)
  1. TEQUIN [Suspect]
     Route: 048
  2. GLUCOTROL [Interacting]
     Dosage: INTERRUPTED IN HOSPITAL, RESTARTED JUST PRIOR TO DISCHARGE
     Route: 048
  3. DIGOXIN [Concomitant]

REACTIONS (3)
  - DRUG INTERACTION [None]
  - HYPERGLYCAEMIA [None]
  - HYPOGLYCAEMIA [None]
